FAERS Safety Report 23589059 (Version 2)
Quarter: 2024Q2

REPORT INFORMATION
  Report Type: Spontaneous
  Country: CA (occurrence: None)
  Receive Date: 20240303
  Receipt Date: 20240612
  Transmission Date: 20240716
  Serious: Yes (Life-Threatening)
  Sender: FDA-Public Use
  Company Number: CA-ROCHE-3519208

PATIENT
  Age: 46 Year
  Sex: Female

DRUGS (5)
  1. SOMATROPIN [Suspect]
     Active Substance: SOMATROPIN
     Indication: Growth hormone deficiency
     Route: 058
  2. SOMATROPIN [Suspect]
     Active Substance: SOMATROPIN
     Dosage: SOLUTION FOR INJECTION IN?PRE-FILLED PEN
     Route: 058
  3. PRASTERONE SULFATE [Concomitant]
     Active Substance: PRASTERONE SULFATE
  4. PROGESTERONE [Concomitant]
     Active Substance: PROGESTERONE
  5. TESTOSTERONE [Concomitant]
     Active Substance: TESTOSTERONE
     Dosage: NOT SPECIFIED

REACTIONS (1)
  - Breast cancer [Recovered/Resolved with Sequelae]
